FAERS Safety Report 9780495 (Version 3)
Quarter: 2014Q1

REPORT INFORMATION
  Report Type: Report from Study
  Country: CA (occurrence: CA)
  Receive Date: 20131224
  Receipt Date: 20140203
  Transmission Date: 20141002
  Serious: Yes (Other)
  Sender: FDA-Public Use
  Company Number: CA-ROCHE-1323950

PATIENT
  Age: 71 Year
  Sex: Male
  Weight: 73.5 kg

DRUGS (6)
  1. RITUXAN [Suspect]
     Indication: B-CELL UNCLASSIFIABLE LYMPHOMA LOW GRADE
     Route: 042
     Dates: start: 2009
  2. RITUXAN [Suspect]
     Route: 042
     Dates: start: 20130710, end: 20131204
  3. CYCLOPHOSPHAMIDE [Concomitant]
  4. HYDROXYDAUNORUBICIN [Concomitant]
  5. ONCOVIN [Concomitant]
  6. PREDNISONE [Concomitant]

REACTIONS (8)
  - Memory impairment [Unknown]
  - Hypothyroidism [Unknown]
  - Blood iron decreased [Unknown]
  - Immune system disorder [Unknown]
  - Neutrophil count decreased [Unknown]
  - Lymphocyte count decreased [Unknown]
  - White blood cell count decreased [Unknown]
  - Platelet count decreased [Unknown]
